FAERS Safety Report 5719121-6 (Version None)
Quarter: 2008Q2

REPORT INFORMATION
  Report Type: 
  Country: None (occurrence: None)
  Receive Date: 20080428
  Receipt Date: 20080421
  Transmission Date: 20081010
  Serious: Yes (Other)
  Sender: FDA-Public Use
  Company Number: TN-SP-2008-01175

PATIENT
  Age: 70 Year
  Sex: Male

DRUGS (1)
  1. BCG  THERAPEUTICS [Suspect]
     Indication: BLADDER CANCER
     Route: 043

REACTIONS (7)
  - ASTHENIA [None]
  - BOVINE TUBERCULOSIS [None]
  - LEUKOCYTOSIS [None]
  - PLEURAL DISORDER [None]
  - PROSTATOMEGALY [None]
  - PYREXIA [None]
  - RALES [None]
